FAERS Safety Report 22230097 (Version 8)
Quarter: 2024Q2

REPORT INFORMATION
  Report Type: Spontaneous
  Country: US (occurrence: US)
  Receive Date: 20230419
  Receipt Date: 20240529
  Transmission Date: 20240716
  Serious: Yes (Other)
  Sender: FDA-Public Use
  Company Number: US-BRISTOL-MYERS SQUIBB COMPANY-2023-052654

PATIENT
  Age: 66 Year
  Sex: Female
  Weight: 65.77 kg

DRUGS (3)
  1. REVLIMID [Suspect]
     Active Substance: LENALIDOMIDE
     Indication: Plasma cell myeloma
     Dosage: 21D ON 7D OFF
     Route: 048
     Dates: start: 20221001
  2. REVLIMID [Suspect]
     Active Substance: LENALIDOMIDE
     Dosage: 21D ON 7D OFF
     Route: 048
     Dates: start: 20230701
  3. REVLIMID [Suspect]
     Active Substance: LENALIDOMIDE
     Dosage: 3 WEEKS ON, 1 WEEK OFF
     Route: 048

REACTIONS (14)
  - Neuropathy peripheral [Recovering/Resolving]
  - Irritable bowel syndrome [Recovering/Resolving]
  - Rheumatoid arthritis [Unknown]
  - Osteoporosis [Unknown]
  - Nausea [Recovering/Resolving]
  - Fatigue [Recovering/Resolving]
  - Pneumonia [Unknown]
  - Malaise [Unknown]
  - Abdominal discomfort [Not Recovered/Not Resolved]
  - Diarrhoea [Not Recovered/Not Resolved]
  - Viral infection [Unknown]
  - Sinusitis [Unknown]
  - Chest pain [Unknown]
  - Monoclonal immunoglobulin present [Unknown]

NARRATIVE: CASE EVENT DATE: 20230501
